FAERS Safety Report 24709250 (Version 1)
Quarter: 2024Q4

REPORT INFORMATION
  Report Type: Spontaneous
  Country: US (occurrence: US)
  Receive Date: 20241208
  Receipt Date: 20241208
  Transmission Date: 20250114
  Serious: No
  Sender: APOTEX
  Company Number: US-APOTEX-2024AP019330

PATIENT
  Sex: Female

DRUGS (1)
  1. DIVALPROEX SODIUM [Suspect]
     Active Substance: DIVALPROEX SODIUM
     Indication: Seizure
     Dosage: UNK
     Route: 065

REACTIONS (1)
  - Maternal exposure during pregnancy [Unknown]
